FAERS Safety Report 19189059 (Version 1)
Quarter: 2021Q2

REPORT INFORMATION
  Report Type: Spontaneous
  Country: NP (occurrence: NP)
  Receive Date: 20210428
  Receipt Date: 20210428
  Transmission Date: 20210717
  Serious: Yes (Hospitalization, Other)
  Sender: FDA-Public Use
  Company Number: NP-SUN PHARMACEUTICAL INDUSTRIES LTD-2021RR-293587

PATIENT
  Age: 5 Year
  Sex: Male

DRUGS (1)
  1. CIPROFLOXACIN. [Suspect]
     Active Substance: CIPROFLOXACIN
     Indication: TYPHOID FEVER
     Dosage: UNK
     Route: 048

REACTIONS (3)
  - Obliterative bronchiolitis [Unknown]
  - Toxic epidermal necrolysis [Unknown]
  - Respiratory failure [Unknown]
